FAERS Safety Report 9290972 (Version 1)
Quarter: 2013Q2

REPORT INFORMATION
  Report Type: Spontaneous
  Country: US (occurrence: US)
  Receive Date: 20130515
  Receipt Date: 20130515
  Transmission Date: 20140414
  Serious: Yes (Other)
  Sender: FDA-Public Use
  Company Number: US-ROXANE LABORATORIES, INC.-2013-RO-00727RO

PATIENT
  Age: 84 Year
  Sex: Male

DRUGS (8)
  1. SERTRALINE [Suspect]
     Indication: DEPRESSION
     Dosage: 50 MG
     Dates: start: 200809
  2. RISPERIDONE [Suspect]
     Indication: DEPRESSION
     Dosage: 2 MG
  3. LAMOTRIGINE [Concomitant]
  4. HYDROCHLOROTHIAZIDE [Concomitant]
  5. LISINOPRIL [Concomitant]
  6. ATORVASTATIN [Concomitant]
  7. IPRATROPIUM BROMIDE [Concomitant]
     Route: 045
  8. FLUTICASONE [Concomitant]
     Route: 045

REACTIONS (1)
  - Parkinsonism [Not Recovered/Not Resolved]
